FAERS Safety Report 8399529-3 (Version None)
Quarter: 2012Q2

REPORT INFORMATION
  Report Type: 
  Country: None (occurrence: None)
  Receive Date: 20120323
  Receipt Date: 20111110
  Transmission Date: 20120825
  Serious: Yes (Other)
  Sender: FDA-Public Use
  Company Number: 163-21880-11072206

PATIENT
  Age: 75 Year
  Sex: Male

DRUGS (9)
  1. PREDNISONE [Concomitant]
  2. NEURONTIN [Concomitant]
  3. PERCOCET [Concomitant]
  4. AMLODIPINE [Concomitant]
  5. AVODART (DUTASTERIDE) (UNKNOWN) [Concomitant]
  6. ASPIRIN [Concomitant]
  7. GEMFIBROZIL [Concomitant]
  8. DEXAMETHASONE [Concomitant]
  9. REVLIMID [Suspect]
     Indication: MULTIPLE MYELOMA
     Dosage: 25 MG, 14 DAYS Q 3 WEEKS, PO 25 MG, EVERY 3 DAYS X 21DAYS, PO
     Route: 048
     Dates: start: 20100901

REACTIONS (3)
  - ANAEMIA [None]
  - PLATELET COUNT DECREASED [None]
  - WHITE BLOOD CELL COUNT DECREASED [None]
